FAERS Safety Report 9015612 (Version 1)
Quarter: 2013Q1

REPORT INFORMATION
  Report Type: Spontaneous
  Country: SE (occurrence: None)
  Receive Date: 20130102
  Receipt Date: 20130102
  Transmission Date: 20140127
  Serious: Yes (Hospitalization)
  Sender: FDA-Public Use
  Company Number: DSA_61623_2012

PATIENT
  Age: 44 Year
  Sex: Female

DRUGS (6)
  1. FLAGYL [Suspect]
     Indication: PRODUCT USED FOR UNKNOWN INDICATION
     Dosage: 3 WEEKS UNTIL NOT CONTINUING
     Dates: start: 201205
  2. DALACIN [Suspect]
     Indication: PRODUCT USED FOR UNKNOWN INDICATION
     Dates: start: 201205
  3. CIPROFLOXACIN HYDROCHLORIDE [Suspect]
     Indication: PRODUCT USED FOR UNKNOWN INDICATION
     Dates: start: 201205
  4. MERONEM [Suspect]
     Indication: PRODUCT USED FOR UNKNOWN INDICATION
     Dates: end: 20120518
  5. CLAFORAN /00497602/ [Concomitant]
  6. STEROIDS NOS [Concomitant]

REACTIONS (2)
  - Rash generalised [None]
  - No therapeutic response [None]
